FAERS Safety Report 5728355-6 (Version None)
Quarter: 2008Q2

REPORT INFORMATION
  Report Type: 
  Country: None (occurrence: None)
  Receive Date: 20080506
  Receipt Date: 20080425
  Transmission Date: 20081010
  Serious: Yes (Other)
  Sender: FDA-Public Use
  Company Number: PHEH2008US03845

PATIENT
  Sex: Female

DRUGS (1)
  1. GENTEAL PM LUBRICANT EYE OINTMENT [Suspect]
     Dosage: UNK, ONCE/SINGLE
     Dates: start: 20080414, end: 20080414

REACTIONS (3)
  - BLINDNESS [None]
  - VISION BLURRED [None]
  - VISUAL DISTURBANCE [None]
